FAERS Safety Report 15201308 (Version 1)
Quarter: 2018Q3

REPORT INFORMATION
  Report Type: Report from Study
  Country: CN (occurrence: CN)
  Receive Date: 20180726
  Receipt Date: 20180726
  Transmission Date: 20181010
  Serious: Yes (Other)
  Sender: FDA-Public Use
  Company Number: CN-ROCHE-2157799

PATIENT

DRUGS (1)
  1. CAPECITABINE. [Suspect]
     Active Substance: CAPECITABINE
     Indication: GASTRIC CANCER
     Route: 048

REACTIONS (7)
  - Diarrhoea [Unknown]
  - Blood creatinine abnormal [Unknown]
  - Vomiting [Unknown]
  - Aspartate aminotransferase abnormal [Unknown]
  - White blood cell count abnormal [Unknown]
  - Nausea [Unknown]
  - Platelet count abnormal [Unknown]
